FAERS Safety Report 5109675-5 (Version None)
Quarter: 2006Q3

REPORT INFORMATION
  Report Type: 
  Country: None (occurrence: None)
  Receive Date: 20060731
  Receipt Date: 20060512
  Transmission Date: 20061208
  Serious: No
  Sender: FDA-Public Use
  Company Number: 2006PV013705

PATIENT
  Sex: Female

DRUGS (2)
  1. BYETTA INJECITION (0.25 MG/ML) [Suspect]
     Indication: DIABETES MELLITUS NON-INSULIN-DEPENDENT
     Dosage: 5 MCG; BID;SC
     Route: 058
     Dates: start: 20060504
  2. ACTOS [Concomitant]

REACTIONS (2)
  - DIABETES MELLITUS [None]
  - WEIGHT [None]
